FAERS Safety Report 9853576 (Version 3)
Quarter: 2014Q1

REPORT INFORMATION
  Report Type: Spontaneous
  Country: IE (occurrence: IE)
  Receive Date: 20140129
  Receipt Date: 20140301
  Transmission Date: 20141002
  Serious: Yes (Hospitalization, Other)
  Sender: FDA-Public Use
  Company Number: US-ASTRAZENECA-2014SE05730

PATIENT
  Age: 2 Year
  Sex: Male

DRUGS (27)
  1. SYNAGIS [Suspect]
     Indication: LUNG DISORDER
     Route: 030
     Dates: start: 20131023
  2. SYNAGIS [Suspect]
     Indication: LUNG DISORDER
     Route: 030
     Dates: start: 20140116
  3. DOMPERIDONE [Concomitant]
     Indication: PRODUCT USED FOR UNKNOWN INDICATION
  4. VITAMIN D [Concomitant]
     Indication: PRODUCT USED FOR UNKNOWN INDICATION
  5. NACL [Concomitant]
     Indication: PRODUCT USED FOR UNKNOWN INDICATION
  6. GALFER [Concomitant]
     Indication: PRODUCT USED FOR UNKNOWN INDICATION
  7. MOVICAL [Concomitant]
     Indication: PRODUCT USED FOR UNKNOWN INDICATION
  8. SILDENAFIL [Concomitant]
     Indication: PRODUCT USED FOR UNKNOWN INDICATION
  9. COTRIMOXAZOLE [Concomitant]
     Indication: PRODUCT USED FOR UNKNOWN INDICATION
  10. BOSENTAN [Concomitant]
     Indication: PRODUCT USED FOR UNKNOWN INDICATION
  11. HYDROCORTISONE [Concomitant]
     Indication: PRODUCT USED FOR UNKNOWN INDICATION
     Dosage: INCREASED TO STRESS DOSE FOR 2 DAYS
  12. HYDROCORTISONE [Concomitant]
     Indication: PRODUCT USED FOR UNKNOWN INDICATION
     Dosage: 6MG TDS FOR 5 DAYS AND THEN WEANED TO BACK TO NORMAL DOSE
  13. HYDROCORTISONE [Concomitant]
     Indication: PRODUCT USED FOR UNKNOWN INDICATION
     Dosage: BACK TO NORMAL DOSE
     Dates: start: 20140217
  14. RANITIDINE [Concomitant]
     Indication: PRODUCT USED FOR UNKNOWN INDICATION
  15. SALINE [Concomitant]
     Indication: PRODUCT USED FOR UNKNOWN INDICATION
  16. TOBRAMYCIN [Concomitant]
     Indication: PRODUCT USED FOR UNKNOWN INDICATION
     Dosage: NEBULISER EVERY OTHER DAY
     Dates: end: 20140219
  17. NASEPTIN [Concomitant]
     Indication: PRODUCT USED FOR UNKNOWN INDICATION
  18. SOMATROPIN [Concomitant]
     Indication: PRODUCT USED FOR UNKNOWN INDICATION
  19. PARACETAMOL [Concomitant]
     Indication: PRODUCT USED FOR UNKNOWN INDICATION
  20. TRIMETHOPRIN [Concomitant]
     Indication: PRODUCT USED FOR UNKNOWN INDICATION
  21. TRIMETHOPRIM [Concomitant]
     Indication: PRODUCT USED FOR UNKNOWN INDICATION
  22. ZERTEC [Concomitant]
     Indication: PRODUCT USED FOR UNKNOWN INDICATION
  23. OCTENASIN AMTIMICROBIAL [Concomitant]
     Indication: PRODUCT USED FOR UNKNOWN INDICATION
  24. LEVOTHYROXINE [Concomitant]
     Indication: PRODUCT USED FOR UNKNOWN INDICATION
  25. OCTENASIN WASH [Concomitant]
     Indication: PRODUCT USED FOR UNKNOWN INDICATION
  26. SODIUM CHLORIDE [Concomitant]
     Indication: PRODUCT USED FOR UNKNOWN INDICATION
  27. ROCEPHIN [Concomitant]
     Indication: PRODUCT USED FOR UNKNOWN INDICATION
     Dosage: ONCE DOSE
     Route: 030

REACTIONS (4)
  - Viral infection [Recovering/Resolving]
  - Excoriation [Recovering/Resolving]
  - Oxygen saturation decreased [Recovering/Resolving]
  - Body temperature increased [Recovering/Resolving]
